FAERS Safety Report 7815168-4 (Version None)
Quarter: 2011Q4

REPORT INFORMATION
  Report Type: 
  Country: None (occurrence: None)
  Receive Date: 20111014
  Receipt Date: 20110930
  Transmission Date: 20120403
  Serious: Yes (Other)
  Sender: FDA-Public Use
  Company Number: ES-CELGENEUS-144-50794-11100056

PATIENT
  Age: 65 Year

DRUGS (1)
  1. VIDAZA [Suspect]
     Route: 065

REACTIONS (3)
  - LIVER DISORDER [None]
  - CARDIOVASCULAR DISORDER [None]
  - RENAL FAILURE [None]
